FAERS Safety Report 9799469 (Version 1)
Quarter: 2014Q1

REPORT INFORMATION
  Report Type: Spontaneous
  Country: US (occurrence: None)
  Receive Date: 20140103
  Receipt Date: 20140103
  Transmission Date: 20141002
  Serious: Yes (Disabling)
  Sender: FDA-Public Use
  Company Number: None

PATIENT
  Age: 53 Year
  Sex: Female
  Weight: 66 kg

DRUGS (8)
  1. HEPARIN [Suspect]
  2. METRONIDAZOLE [Concomitant]
  3. NOREPINEPHRINE DRIP [Concomitant]
  4. CEFAZOLIN [Concomitant]
  5. PROPOFOL [Concomitant]
  6. INSULIN [Concomitant]
  7. HYDROCORTISONE [Concomitant]
  8. VANCOMYCIN [Concomitant]

REACTIONS (3)
  - Disseminated intravascular coagulation [None]
  - Amputation [None]
  - Heparin-induced thrombocytopenia [None]
